FAERS Safety Report 6074325-0 (Version None)
Quarter: 2009Q1

REPORT INFORMATION
  Report Type: 
  Country: None (occurrence: None)
  Receive Date: 20090211
  Receipt Date: 20090203
  Transmission Date: 20090719
  Serious: No
  Sender: FDA-Public Use
  Company Number: US-B.I. PHARMACEUTICALS,INC./RIDGEFIELD-2009-BP-01373BP

PATIENT
  Sex: Male

DRUGS (5)
  1. SPIRIVA [Suspect]
     Indication: ASTHMA
     Dosage: 18MCG
     Route: 055
     Dates: start: 20090116
  2. SIMVASTATIN [Concomitant]
     Indication: BLOOD CHOLESTEROL INCREASED
     Route: 048
     Dates: start: 20090106
  3. PREVACID [Concomitant]
     Indication: GASTROOESOPHAGEAL REFLUX DISEASE
     Route: 048
  4. CHANTIX [Concomitant]
     Indication: SMOKING CESSATION THERAPY
     Dosage: 1MG
     Route: 048
     Dates: start: 20080901
  5. ALTACE [Concomitant]
     Indication: HYPERTENSION
     Dosage: 10MG
     Route: 048

REACTIONS (3)
  - COUGH [None]
  - DRUG INEFFECTIVE [None]
  - FEELING ABNORMAL [None]
